FAERS Safety Report 5010113-1 (Version None)
Quarter: 2006Q2

REPORT INFORMATION
  Report Type: 
  Country: None (occurrence: None)
  Receive Date: 20060404
  Receipt Date: 20051206
  Transmission Date: 20061013
  Serious: No
  Sender: FDA-Public Use
  Company Number: US200512001080

PATIENT
  Age: 63 Year
  Sex: Female

DRUGS (1)
  1. CYMBALTA [Suspect]
     Indication: BACK PAIN
     Dosage: 30 MG, DAILY (1/D), ;  20 MG, OTHER
     Dates: start: 20051201

REACTIONS (5)
  - AFFECT LABILITY [None]
  - DRY MOUTH [None]
  - HEADACHE [None]
  - MUSCLE TIGHTNESS [None]
  - PSYCHOMOTOR HYPERACTIVITY [None]
